FAERS Safety Report 5311372-8 (Version None)
Quarter: 2007Q2

REPORT INFORMATION
  Report Type: 
  Country: None (occurrence: None)
  Receive Date: 20070426
  Receipt Date: 20070426
  Transmission Date: 20071010
  Serious: Yes (Hospitalization, Other)
  Sender: FDA-Public Use
  Company Number: None

PATIENT
  Age: 50 Year
  Sex: Male
  Weight: 79.1 kg

DRUGS (2)
  1. SEPTRA [Suspect]
     Indication: BURNS SECOND DEGREE
     Dosage: DS 1 PO BID X 5 DAYS
     Route: 048
     Dates: start: 20061217, end: 20061219
  2. TYLENOL W/ CODEINE [Concomitant]

REACTIONS (13)
  - ABSCESS [None]
  - ARTHRALGIA [None]
  - DRUG ERUPTION [None]
  - DRUG HYPERSENSITIVITY [None]
  - GROIN PAIN [None]
  - INFECTION [None]
  - LYMPHADENOPATHY [None]
  - MUSCLE STRAIN [None]
  - PENILE SWELLING [None]
  - PENIS DISORDER [None]
  - PURULENT DISCHARGE [None]
  - RASH ERYTHEMATOUS [None]
  - SKIN EXFOLIATION [None]
